FAERS Safety Report 6675069-4 (Version None)
Quarter: 2010Q1

REPORT INFORMATION
  Report Type: 
  Country: None (occurrence: None)
  Receive Date: 20100331
  Receipt Date: 20090912
  Transmission Date: 20100710
  Serious: Yes (Other)
  Sender: FDA-Public Use
  Company Number: 2009248402

PATIENT

DRUGS (1)
  1. SUTENT [Suspect]

REACTIONS (1)
  - PLATELET COUNT DECREASED [None]
